FAERS Safety Report 8854961 (Version 3)
Quarter: 2013Q1

REPORT INFORMATION
  Report Type: Spontaneous
  Country: JP (occurrence: JP)
  Receive Date: 20121023
  Receipt Date: 20130107
  Transmission Date: 20140127
  Serious: Yes (Death, Other)
  Sender: FDA-Public Use
  Company Number: JP-MILLENNIUM PHARMACEUTICALS, INC.-2012-07288

PATIENT
  Sex: 0

DRUGS (8)
  1. VELCADE [Suspect]
     Indication: WALDENSTROM^S MACROGLOBULINAEMIA
     Dosage: 2 MG, UNK
     Route: 042
  2. DEXAMETHASONE [Concomitant]
     Indication: WALDENSTROM^S MACROGLOBULINAEMIA
     Dosage: 12 MG, UNK
  3. CYCLOPHOSPHAMIDE [Concomitant]
     Dosage: 500 MG, UNK
  4. DOXORUBICIN HYDROCHLORIDE [Concomitant]
     Dosage: 60 MG, UNK
  5. VINCRISTINE SULFATE [Concomitant]
     Dosage: 2 MG, UNK
  6. PREDNISOLONE [Concomitant]
     Dosage: 100 MG, UNK
  7. G-CSF [Concomitant]
  8. RITUXIMAB [Concomitant]

REACTIONS (6)
  - Death [Fatal]
  - Acute myeloid leukaemia [Unknown]
  - Neutrophil count decreased [Unknown]
  - Platelet count decreased [Unknown]
  - Anaemia [Unknown]
  - Off label use [Unknown]
